FAERS Safety Report 7217508-6 (Version None)
Quarter: 2011Q1

REPORT INFORMATION
  Report Type: 
  Country: None (occurrence: None)
  Receive Date: 20110110
  Receipt Date: 20101227
  Transmission Date: 20110831
  Serious: Yes (Hospitalization)
  Sender: FDA-Public Use
  Company Number: US-ACTELION-A-US2010-43154

PATIENT

DRUGS (4)
  1. COUMADIN [Concomitant]
  2. BOSENTAN TABLET UNKNOWN US MG [Suspect]
     Indication: PULMONARY ARTERIAL HYPERTENSION
     Dosage: UNK
     Route: 048
     Dates: start: 20081107
  3. SOTALOL [Concomitant]
  4. REVATIO [Concomitant]

REACTIONS (1)
  - URINARY TRACT INFECTION [None]
